FAERS Safety Report 4987474-2 (Version None)
Quarter: 2006Q2

REPORT INFORMATION
  Report Type: 
  Country: None (occurrence: None)
  Receive Date: 20060501
  Receipt Date: 20051104
  Transmission Date: 20061013
  Serious: Yes (Death, Hospitalization, Other)
  Sender: FDA-Public Use
  Company Number: US-MERCK-0511USA01074

PATIENT
  Age: 52 Year
  Sex: Male
  Weight: 123 kg

DRUGS (43)
  1. [THERAPY UNSPECIFIED] [Concomitant]
     Route: 065
  2. VIOXX [Suspect]
     Indication: BACK PAIN
     Route: 048
     Dates: start: 20000101, end: 20030901
  3. ACTOS [Concomitant]
     Route: 065
  4. ALBUTEROL [Concomitant]
     Route: 065
  5. ALLEGRA [Concomitant]
     Route: 065
  6. AMITRIPTYLINE HYDROCHLORIDE [Concomitant]
     Route: 065
  7. ATENOLOL [Concomitant]
     Route: 065
  8. ATIVAN [Concomitant]
     Route: 065
  9. CARDIZEM [Concomitant]
     Route: 065
  10. CARISOPRODOL [Concomitant]
     Route: 065
  11. DALMANE [Concomitant]
     Route: 065
  12. DIOVAN [Concomitant]
     Route: 065
  13. ELAVIL [Concomitant]
     Route: 048
  14. FLUOXETINE HYDROCHLORIDE [Concomitant]
     Route: 065
  15. GLUCOSAMINE [Concomitant]
     Route: 065
  16. HALCION [Concomitant]
     Route: 065
  17. K-DUR 10 [Concomitant]
     Route: 065
  18. LASIX [Concomitant]
     Route: 065
  19. LIDODERM [Concomitant]
     Route: 065
  20. LIPITOR [Concomitant]
     Route: 065
  21. LORAZEPAM [Concomitant]
     Route: 065
  22. METROGEL [Concomitant]
     Route: 065
  23. MINOCYCLINE HYDROCHLORIDE [Concomitant]
     Route: 065
  24. MONOPRIL [Concomitant]
     Route: 065
  25. DIMETHYL SULFONE [Concomitant]
     Route: 065
  26. NEURONTIN [Concomitant]
     Route: 065
  27. NEXIUM [Concomitant]
     Route: 065
  28. POTASSIUM CHLORIDE [Concomitant]
     Route: 065
  29. PROCTOFOAM [Concomitant]
     Route: 065
  30. PROZAC [Concomitant]
     Route: 065
  31. ADVAIR DISKUS 100/50 [Concomitant]
     Route: 065
  32. SOMA [Concomitant]
     Route: 065
  33. STARLIX [Concomitant]
     Route: 065
  34. GASTROINTESTINAL PREPARATIONS (UNSPECIFIED) [Concomitant]
     Route: 065
  35. TRAMADOL HYDROCHLORIDE [Concomitant]
     Route: 065
  36. TRIAZOLAM [Concomitant]
     Route: 065
  37. TYLENOL ARTHRITIS EXTENDED RELIEF [Concomitant]
     Route: 065
  38. ULTRAM [Concomitant]
     Route: 065
  39. VICODIN [Concomitant]
     Route: 065
  40. ASCORBIC ACID [Concomitant]
     Route: 065
  41. VITAMIN E [Concomitant]
     Route: 065
  42. VOLTAREN [Concomitant]
     Route: 065
  43. ZANAFLEX [Concomitant]
     Route: 065

REACTIONS (11)
  - CARDIAC FAILURE CONGESTIVE [None]
  - CORONARY ARTERY DISEASE [None]
  - DEATH [None]
  - DIABETES MELLITUS [None]
  - DYSARTHRIA [None]
  - GASTROOESOPHAGEAL REFLUX DISEASE [None]
  - HYPOTENSION [None]
  - JOINT DISLOCATION [None]
  - MYOCARDIAL INFARCTION [None]
  - POLYP [None]
  - SYNCOPE [None]
